FAERS Safety Report 9911209 (Version 1)
Quarter: 2014Q1

REPORT INFORMATION
  Report Type: Spontaneous
  Country: FR (occurrence: FR)
  Receive Date: 20140219
  Receipt Date: 20140219
  Transmission Date: 20141002
  Serious: Yes (Life-Threatening)
  Sender: FDA-Public Use
  Company Number: FR-PFIZER INC-2014042460

PATIENT
  Age: 39 Year
  Sex: Male

DRUGS (14)
  1. VINCRISTINE SULFATE [Suspect]
     Indication: BURKITT^S LYMPHOMA
     Dosage: UNK
     Route: 042
     Dates: start: 20120615, end: 20120615
  2. VINCRISTINE SULFATE [Suspect]
     Dosage: UNK
     Route: 042
     Dates: start: 20120620, end: 20120626
  3. DOXORUBICIN HCL [Suspect]
     Indication: BURKITT^S LYMPHOMA
     Dosage: UNK
     Route: 042
     Dates: start: 20120620, end: 20120626
  4. ARACYTINE [Suspect]
     Indication: BURKITT^S LYMPHOMA
     Dosage: UNK
     Route: 042
     Dates: start: 20120618, end: 20120618
  5. ARACYTINE [Suspect]
     Dosage: UNK
     Route: 042
     Dates: start: 20120625, end: 20120625
  6. ARACYTINE [Suspect]
     Dosage: UNK
     Route: 042
     Dates: start: 20120627, end: 20120627
  7. ENDOXAN [Suspect]
     Indication: BURKITT^S LYMPHOMA
     Dosage: UNK
     Route: 042
     Dates: start: 20120615, end: 20120615
  8. ENDOXAN [Suspect]
     Dosage: UNK
     Route: 042
     Dates: start: 20120620, end: 20120626
  9. MABTHERA [Suspect]
     Indication: BURKITT^S LYMPHOMA
     Dosage: UNK
     Route: 042
     Dates: start: 20120620, end: 20120626
  10. DEXAMETHASONE [Suspect]
     Indication: BURKITT^S LYMPHOMA
     Dosage: UNK
     Route: 042
     Dates: start: 20120618, end: 20120618
  11. DEXAMETHASONE [Suspect]
     Dosage: UNK
     Route: 042
     Dates: start: 20120625, end: 20120625
  12. DEXAMETHASONE [Suspect]
     Dosage: UNK
     Route: 042
     Dates: start: 20120627, end: 20120627
  13. TRUVADA [Concomitant]
     Dosage: UNK
     Dates: start: 20120613
  14. ISENTRESS [Concomitant]
     Dosage: UNK
     Dates: start: 20120613

REACTIONS (3)
  - Bone marrow failure [Recovered/Resolved]
  - Colitis [Recovered/Resolved]
  - Septic shock [Recovered/Resolved]
